FAERS Safety Report 10752751 (Version 2)
Quarter: 2016Q1

REPORT INFORMATION
  Report Type: Report from Study
  Country: US (occurrence: US)
  Receive Date: 20150130
  Receipt Date: 20160114
  Transmission Date: 20160525
  Serious: No
  Sender: FDA-Public Use
  Company Number: US-ABBVIE-14P-163-1319754-00

PATIENT
  Age: 31 Year
  Sex: Female

DRUGS (1)
  1. LUPRON DEPOT [Suspect]
     Active Substance: LEUPROLIDE ACETATE
     Indication: UTERINE LEIOMYOMA
     Route: 050
     Dates: start: 20141027, end: 20141027

REACTIONS (6)
  - Fatigue [Not Recovered/Not Resolved]
  - Vaginal haemorrhage [Recovered/Resolved]
  - Mood swings [Not Recovered/Not Resolved]
  - Vaginal haemorrhage [Recovered/Resolved]
  - Cold sweat [Not Recovered/Not Resolved]
  - Abdominal pain [Not Recovered/Not Resolved]

NARRATIVE: CASE EVENT DATE: 201411
